FAERS Safety Report 6458054-7 (Version None)
Quarter: 2009Q4

REPORT INFORMATION
  Report Type: 
  Country: None (occurrence: None)
  Receive Date: 20091125
  Receipt Date: 20091006
  Transmission Date: 20100525
  Serious: Yes (Hospitalization, Other)
  Sender: FDA-Public Use
  Company Number: US-AMGEN-QUU365573

PATIENT
  Sex: Male
  Weight: 58.6 kg

DRUGS (9)
  1. ENBREL [Suspect]
     Indication: RHEUMATOID ARTHRITIS
     Route: 058
     Dates: start: 20021101
  2. SULFASALAZINE [Concomitant]
     Dates: start: 20090601
  3. METHOTREXATE [Concomitant]
  4. PLAQUENIL [Concomitant]
  5. EXCEDRIN (MIGRAINE) [Concomitant]
  6. FLEXERIL [Concomitant]
  7. TRAMADOL HCL [Concomitant]
  8. FOLIC ACID [Concomitant]
  9. ST JOHNS WORT [Concomitant]

REACTIONS (10)
  - ARTHRALGIA [None]
  - HEPATIC ENZYME INCREASED [None]
  - JOINT STIFFNESS [None]
  - NAUSEA [None]
  - PAIN [None]
  - PANCREATITIS [None]
  - STAPHYLOCOCCAL SKIN INFECTION [None]
  - TONGUE BLISTERING [None]
  - TONGUE DISORDER [None]
  - VOMITING [None]
